FAERS Safety Report 8353484-0 (Version None)
Quarter: 2012Q2

REPORT INFORMATION
  Report Type: 
  Country: None (occurrence: None)
  Receive Date: 20120511
  Receipt Date: 20110408
  Transmission Date: 20120825
  Serious: No
  Sender: FDA-Public Use
  Company Number: US-GLAXOSMITHKLINE-A0923089A

PATIENT
  Age: 44 Year
  Sex: Female
  Weight: 65.9 kg

DRUGS (7)
  1. VITAMIN D [Concomitant]
  2. CARVEDILOL [Concomitant]
  3. IRON [Concomitant]
  4. TYKERB [Suspect]
     Indication: PRODUCT USED FOR UNKNOWN INDICATION
     Dosage: 1250MG PER DAY
     Route: 048
  5. ONDANSETRON [Concomitant]
  6. CALCIUM [Concomitant]
  7. IMODIUM [Concomitant]

REACTIONS (4)
  - ORAL PAIN [None]
  - NAUSEA [None]
  - DECREASED APPETITE [None]
  - DIARRHOEA [None]
